FAERS Safety Report 19398117 (Version 1)
Quarter: 2021Q2

REPORT INFORMATION
  Report Type: Spontaneous
  Country: US (occurrence: US)
  Receive Date: 20210609
  Receipt Date: 20210609
  Transmission Date: 20210717
  Serious: No
  Sender: FDA-Public Use
  Company Number: None

PATIENT
  Age: 33 Year
  Sex: Female
  Weight: 67.5 kg

DRUGS (16)
  1. XANAX [Concomitant]
     Active Substance: ALPRAZOLAM
  2. WOMEN^S MULTI VITAMIN [Concomitant]
  3. TORODOL [Concomitant]
  4. LUCENTIS [Concomitant]
     Active Substance: RANIBIZUMAB
  5. ZYRTEC [Concomitant]
     Active Substance: CETIRIZINE HYDROCHLORIDE
  6. VOLTAREN [Concomitant]
     Active Substance: DICLOFENAC SODIUM
  7. VITAMIN D [Concomitant]
     Active Substance: VITAMIN D NOS
  8. ZOFRAN [Concomitant]
     Active Substance: ONDANSETRON HYDROCHLORIDE
  9. LIDOCAINE. [Concomitant]
     Active Substance: LIDOCAINE
  10. VELOFLAXINE [Concomitant]
  11. IBUPROFEN. [Concomitant]
     Active Substance: IBUPROFEN
  12. MECLAZINE [Concomitant]
  13. MAGNESIUM CITRATE. [Concomitant]
     Active Substance: MAGNESIUM CITRATE
  14. PROBIOTIC [Concomitant]
     Active Substance: PROBIOTICS NOS
  15. EMGALITY [Suspect]
     Active Substance: GALCANEZUMAB-GNLM
     Indication: MIGRAINE
     Dates: start: 20210408, end: 20210508
  16. VITAMIN B12 [Concomitant]
     Active Substance: CYANOCOBALAMIN

REACTIONS (4)
  - Injection site pain [None]
  - Peripheral swelling [None]
  - Urticaria [None]
  - Rash [None]

NARRATIVE: CASE EVENT DATE: 20210408
